FAERS Safety Report 14521085 (Version 1)
Quarter: 2018Q1

REPORT INFORMATION
  Report Type: Spontaneous
  Country: None (occurrence: US)
  Receive Date: 20180212
  Receipt Date: 20180212
  Transmission Date: 20180509
  Serious: No
  Sender: FDA-Public Use
  Company Number: US-AMAG PHARMACEUTICALS, INC.-AMAG201700733

PATIENT

DRUGS (6)
  1. ZOFRAN [Concomitant]
     Active Substance: ONDANSETRON HYDROCHLORIDE
     Indication: VOMITING
  2. DICLEGIS [Concomitant]
     Active Substance: DOXYLAMINE SUCCINATE\PYRIDOXINE HYDROCHLORIDE
     Indication: VOMITING
  3. MAKENA [Suspect]
     Active Substance: HYDROXYPROGESTERONE CAPROATE
     Indication: PREMATURE DELIVERY
     Dosage: UNK
     Route: 065
     Dates: start: 20161222
  4. ZOFRAN [Concomitant]
     Active Substance: ONDANSETRON HYDROCHLORIDE
     Indication: NAUSEA
     Dosage: 4 MG, PRN
     Dates: start: 20161104
  5. PNV [Concomitant]
     Indication: VITAMIN SUPPLEMENTATION
     Dosage: UNK, QD
     Dates: start: 20161105
  6. DICLEGIS [Concomitant]
     Active Substance: DOXYLAMINE SUCCINATE\PYRIDOXINE HYDROCHLORIDE
     Indication: NAUSEA
     Dosage: 20 MG, UNK
     Dates: start: 20170228

REACTIONS (2)
  - Medication error [Unknown]
  - Cough [Recovered/Resolved]

NARRATIVE: CASE EVENT DATE: 20170226
